FAERS Safety Report 18975506 (Version 1)
Quarter: 2021Q1

REPORT INFORMATION
  Report Type: Other
  Country: US (occurrence: GB)
  Receive Date: 20210305
  Receipt Date: 20210305
  Transmission Date: 20210420
  Serious: Yes (Other)
  Sender: FDA-Public Use
  Company Number: GB-BRECKENRIDGE PHARMACEUTICAL, INC.-2107630

PATIENT
  Age: 52 Year
  Sex: Female

DRUGS (1)
  1. OMEPRAZOLE. [Suspect]
     Active Substance: OMEPRAZOLE
     Indication: HIATUS HERNIA

REACTIONS (9)
  - Constipation [None]
  - Intestinal obstruction [None]
  - Gastrooesophageal reflux disease [None]
  - Immunosuppression [None]
  - Tinnitus [None]
  - Headache [None]
  - Diarrhoea [None]
  - Liver injury [None]
  - Diabetes mellitus [None]
